FAERS Safety Report 6963054-4 (Version None)
Quarter: 2010Q3

REPORT INFORMATION
  Report Type: 
  Country: None (occurrence: None)
  Receive Date: 20100830
  Receipt Date: 20100819
  Transmission Date: 20110219
  Serious: Yes (Hospitalization, Other)
  Sender: FDA-Public Use
  Company Number: WAES 0812USA04669

PATIENT
  Age: 77 Year
  Sex: Male

DRUGS (16)
  1. ZOCOR [Suspect]
     Indication: ACUTE CORONARY SYNDROME
     Dosage: 40 MG/DAILY PO
     Route: 048
     Dates: start: 20071122
  2. PLACEBO (UNSPECIFIED) [Suspect]
     Indication: ACUTE CORONARY SYNDROME
     Dosage: 1 TAB/DAILY PO
     Route: 048
     Dates: start: 20071122
  3. TAB PLACEBO (UNSPECIFIED) [Suspect]
     Indication: ACUTE CORONARY SYNDROME
     Dosage: 1 TAB/DAILY PO
     Route: 048
     Dates: start: 20071122
  4. GLUCAZIDE [Concomitant]
  5. NITROGLYCERIN [Concomitant]
  6. ALBUTEROL [Concomitant]
  7. AMITRIPTYLINE HYDROCHLORIDE [Concomitant]
  8. ASPIRIN [Concomitant]
  9. CARBOCYSTEINE [Concomitant]
  10. FUROSEMIDE [Concomitant]
  11. ISOSORBIDE MONONITRATE [Concomitant]
  12. LACTULOSE [Concomitant]
  13. NICORANDIL [Concomitant]
  14. QUININE BISULFATE [Concomitant]
  15. SENNA [Concomitant]
  16. TEMAZEPAM [Concomitant]

REACTIONS (5)
  - ALANINE AMINOTRANSFERASE INCREASED [None]
  - ANGINA PECTORIS [None]
  - GLYCOSYLATED HAEMOGLOBIN INCREASED [None]
  - GOUT [None]
  - LOWER RESPIRATORY TRACT INFECTION [None]
